FAERS Safety Report 5467122-8 (Version None)
Quarter: 2007Q3

REPORT INFORMATION
  Report Type: 
  Country: None (occurrence: None)
  Receive Date: 20070921
  Receipt Date: 20070921
  Transmission Date: 20080115
  Serious: Yes (Life-Threatening)
  Sender: FDA-Public Use
  Company Number: None

PATIENT
  Sex: Female

DRUGS (1)
  1. OMNISCAN [Suspect]
     Dosage: SEE PRIOR SECTION

REACTIONS (1)
  - NEPHROGENIC SYSTEMIC FIBROSIS [None]
